FAERS Safety Report 9783446 (Version 1)
Quarter: 2013Q4

REPORT INFORMATION
  Report Type: Spontaneous
  Country: VE (occurrence: VE)
  Receive Date: 20131226
  Receipt Date: 20131226
  Transmission Date: 20140711
  Serious: Yes (Hospitalization)
  Sender: FDA-Public Use
  Company Number: VE-PFIZER INC-2013366057

PATIENT
  Sex: Female

DRUGS (1)
  1. CADUET [Suspect]
     Dosage: 1 DF, ONCE DAILY

REACTIONS (2)
  - Blood pressure increased [Unknown]
  - Headache [Unknown]
